FAERS Safety Report 19497862 (Version 1)
Quarter: 2021Q3

REPORT INFORMATION
  Report Type: Other
  Country: CA (occurrence: CA)
  Receive Date: 20210706
  Receipt Date: 20210706
  Transmission Date: 20211014
  Serious: Yes (Life-Threatening, Hospitalization)
  Sender: FDA-Public Use
  Company Number: CA-TARO-2021TAR00708

PATIENT
  Age: 91 Year
  Sex: Female

DRUGS (1)
  1. TARO?WARFARIN [Suspect]
     Active Substance: WARFARIN
     Indication: PRODUCT USED FOR UNKNOWN INDICATION
     Dosage: UNK
     Route: 048

REACTIONS (2)
  - Anticoagulation drug level above therapeutic [Recovered/Resolved]
  - Fall [Recovered/Resolved]
